FAERS Safety Report 6405892-2 (Version None)
Quarter: 2009Q4

REPORT INFORMATION
  Report Type: 
  Country: None (occurrence: None)
  Receive Date: 20091016
  Receipt Date: 20091016
  Transmission Date: 20100525
  Serious: Yes (Death)
  Sender: FDA-Public Use
  Company Number: None

PATIENT
  Sex: Male
  Weight: 99 kg

DRUGS (2)
  1. RITUXAN [Suspect]
     Indication: CHRONIC LYMPHOCYTIC LEUKAEMIA
     Dosage: 830 MG EVERY 3 WEEKS IV DRIP
     Route: 041
     Dates: start: 20090819, end: 20090819
  2. CYTOXAN/ FLUDARA 500 MG/50 MG BAXTER/BERLX [Suspect]
     Dosage: 560 MG/42 MG BOTH EVERY 3 WEEK IV DRIP
     Route: 041
     Dates: start: 20090819, end: 20090821

REACTIONS (1)
  - THROMBOSIS [None]
